FAERS Safety Report 5227272-8 (Version None)
Quarter: 2007Q1

REPORT INFORMATION
  Report Type: 
  Country: None (occurrence: None)
  Receive Date: 20070202
  Receipt Date: 20070130
  Transmission Date: 20070707
  Serious: Yes (Death)
  Sender: FDA-Public Use
  Company Number: HQWYE286102FEB07

PATIENT
  Sex: Male
  Weight: 75.2 kg

DRUGS (4)
  1. GEMTUZUMAB OZOGAMICIN [Suspect]
     Indication: ACUTE MYELOID LEUKAEMIA
     Dosage: TOTAL DOSE RECEIVED DURING FIRST CYCLE 11.0 MG
     Route: 042
     Dates: start: 20050607, end: 20050607
  2. ETOPOSIDE [Suspect]
     Indication: ACUTE MYELOID LEUKAEMIA
     Dosage: TOTAL DOSE RECEIVED DURING INDUCTION 546 MG
     Route: 042
     Dates: start: 20050620, end: 20050626
  3. CYTARABINE [Suspect]
     Indication: ACUTE MYELOID LEUKAEMIA
     Dosage: TOTAL DOSE RECEIVED DURING INDUCTION 1274 MG
     Route: 042
     Dates: start: 20050620, end: 20050626
  4. MITOXANTRONE [Suspect]
     Dosage: TOTAL DOSE RECEIVED DURING INDUCTION 38.1 MG
     Route: 042
     Dates: start: 20050620, end: 20050626

REACTIONS (1)
  - MYOCARDIAL INFARCTION [None]
